FAERS Safety Report 5632916-2 (Version None)
Quarter: 2008Q1

REPORT INFORMATION
  Report Type: 
  Country: None (occurrence: None)
  Receive Date: 20080212
  Receipt Date: 20080201
  Transmission Date: 20080703
  Serious: Yes (Other)
  Sender: FDA-Public Use
  Company Number: 2008AP000358

PATIENT
  Age: 75 Year
  Sex: Female

DRUGS (1)
  1. APO-DILTIAZ (DILTIAZEM HYDROCHLORIDE) [Suspect]
     Indication: BLOOD PRESSURE
     Dosage: 60 MG;TAB;PO;BID
     Route: 048
     Dates: start: 20080129

REACTIONS (3)
  - EYE PAIN [None]
  - HYPERSENSITIVITY [None]
  - PNEUMONIA [None]
